FAERS Safety Report 5096358-3 (Version None)
Quarter: 2006Q3

REPORT INFORMATION
  Report Type: 
  Country: None (occurrence: None)
  Receive Date: 20060728
  Receipt Date: 20060503
  Transmission Date: 20061208
  Serious: No
  Sender: FDA-Public Use
  Company Number: COT_0532_2006

PATIENT
  Age: 71 Year
  Sex: Female
  Weight: 61.6892 kg

DRUGS (15)
  1. VENTAVIS [Suspect]
     Indication: PULMONARY HYPERTENSION
     Dosage: 5 MCG 5XD IH
     Dates: start: 20051206
  2. AGRYLIN [Suspect]
     Dosage: 0.5 MG QDAY PO
     Route: 048
  3. WARFARIN SODIUM [Suspect]
     Dosage: 4 MG DAILY PO
     Route: 048
  4. SPIRONOLACTONE [Concomitant]
  5. PRILOSEC [Concomitant]
  6. TYLENOL [Concomitant]
  7. TRACLEER [Concomitant]
  8. LACTULOSE [Concomitant]
  9. DIGOXIN [Concomitant]
  10. NORVASC [Concomitant]
  11. FUROSEMIDE [Concomitant]
  12. AMBIEN [Concomitant]
  13. DOXYCYCLINE HYCLATE [Concomitant]
  14. HISTINEX HC [Concomitant]
  15. GLIPIZIDE [Concomitant]

REACTIONS (2)
  - EPISTAXIS [None]
  - HAEMOPTYSIS [None]
